FAERS Safety Report 15366547 (Version 1)
Quarter: 2018Q3

REPORT INFORMATION
  Report Type: Spontaneous
  Country: US (occurrence: US)
  Receive Date: 20180831
  Receipt Date: 20180831
  Transmission Date: 20181010
  Serious: Yes (Life-Threatening, Disabling)
  Sender: FDA-Public Use
  Company Number: None

PATIENT
  Age: 76 Year
  Sex: Female
  Weight: 64.41 kg

DRUGS (17)
  1. CARVEDILOL. [Concomitant]
     Active Substance: CARVEDILOL
  2. IBUPROFEN. [Concomitant]
     Active Substance: IBUPROFEN
  3. FUROSEMIDE. [Concomitant]
     Active Substance: FUROSEMIDE
  4. POT CHLORIDE [Concomitant]
     Active Substance: POTASSIUM CHLORIDE
  5. GABAPENTIN. [Concomitant]
     Active Substance: GABAPENTIN
  6. OMEGA?3 ACIDS [Concomitant]
     Active Substance: OMEGA-3 FATTY ACIDS
  7. GREEN TEA CR PHYTOSOME [Concomitant]
  8. LOPERAMIDE HC [Concomitant]
  9. OMEPRAZOLE. [Concomitant]
     Active Substance: OMEPRAZOLE
  10. BACLOFEN 20MG [Suspect]
     Active Substance: BACLOFEN
     Indication: MUSCLE SPASMS
     Dosage: ?          QUANTITY:1 DF DOSAGE FORM;?
     Route: 048
     Dates: start: 20180706, end: 20180707
  11. AMLODIPINE [Concomitant]
     Active Substance: AMLODIPINE BESYLATE
  12. HYDROCO/APAP [Concomitant]
     Active Substance: ACETAMINOPHEN\HYDROCODONE
  13. COLESTIPOL [Concomitant]
     Active Substance: COLESTIPOL
  14. COQ10 [Concomitant]
     Active Substance: UBIDECARENONE
  15. ZERTEX [Concomitant]
  16. MULTI VIT ESSENTIAL [Concomitant]
  17. CALCIUM 600MG + D [Concomitant]

REACTIONS (7)
  - Back pain [None]
  - Unresponsive to stimuli [None]
  - Gait disturbance [None]
  - Dysstasia [None]
  - Hypersomnia [None]
  - Altered state of consciousness [None]
  - Somnolence [None]
